FAERS Safety Report 13746821 (Version 2)
Quarter: 2017Q3

REPORT INFORMATION
  Report Type: Spontaneous
  Country: US (occurrence: US)
  Receive Date: 20170712
  Receipt Date: 20170822
  Transmission Date: 20171127
  Serious: Yes (Hospitalization, Other)
  Sender: FDA-Public Use
  Company Number: US-ACTELION-A-US2017-156460

PATIENT
  Age: 56 Year
  Sex: Female
  Weight: 63.49 kg

DRUGS (2)
  1. LETAIRIS [Concomitant]
     Active Substance: AMBRISENTAN
  2. VELETRI [Suspect]
     Active Substance: EPOPROSTENOL
     Indication: PULMONARY ARTERIAL HYPERTENSION
     Dosage: 25.77 NG/KG, PER MIN
     Route: 042

REACTIONS (2)
  - Breast cancer [Recovering/Resolving]
  - Mastectomy [Recovering/Resolving]
